FAERS Safety Report 26061059 (Version 1)
Quarter: 2025Q4

REPORT INFORMATION
  Report Type: Report from Study
  Country: EU (occurrence: EU)
  Receive Date: 20251118
  Receipt Date: 20251118
  Transmission Date: 20260118
  Serious: Yes (Other)
  Sender: PFIZER
  Company Number: EU-PFIZER INC-202500223964

PATIENT
  Age: 15 Day
  Sex: Female
  Weight: 2.545 kg

DRUGS (5)
  1. CARBOPLATIN [Suspect]
     Active Substance: CARBOPLATIN
     Indication: Neuroblastoma
     Dosage: 4.4 MG/KG, CYCLIC, DAYS 1-2, COURSE 2
  2. CARBOPLATIN [Suspect]
     Active Substance: CARBOPLATIN
     Dosage: 2.5 MG, CYCLIC, ON DAY 3, COURSE 2
  3. CARBOPLATIN [Suspect]
     Active Substance: CARBOPLATIN
     Dosage: 3.8 MG/KG, CYCLIC, DAYS 1-3 COURSE 3
  4. ETOPOSIDE [Suspect]
     Active Substance: ETOPOSIDE
     Indication: Neuroblastoma
     Dosage: 3.3 MG/KG, CYCLIC, DAYS 1-3 COURSE 2
  5. ETOPOSIDE [Suspect]
     Active Substance: ETOPOSIDE
     Dosage: 3.3 MG/KG, CYCLIC, DAYS 1-3 COURSE 3

REACTIONS (2)
  - Aplasia pure red cell [Unknown]
  - Poor feeding infant [Unknown]
